FAERS Safety Report 7399870-7 (Version None)
Quarter: 2011Q2

REPORT INFORMATION
  Report Type: 
  Country: None (occurrence: None)
  Receive Date: 20110407
  Receipt Date: 20110329
  Transmission Date: 20111010
  Serious: Yes (Hospitalization)
  Sender: FDA-Public Use
  Company Number: US-WATSON-2011-04129

PATIENT
  Sex: Male

DRUGS (2)
  1. DIAZEPAM [Suspect]
     Indication: ANXIETY
     Dosage: 10 MG, TID
     Route: 048
     Dates: start: 20110326
  2. DIAZEPAM [Suspect]
     Dosage: UNK
     Route: 048
     Dates: start: 19890101, end: 20110325

REACTIONS (6)
  - STIFF-MAN SYNDROME [None]
  - MUSCLE TIGHTNESS [None]
  - SPINAL FRACTURE [None]
  - DYSPEPSIA [None]
  - DRUG WITHDRAWAL CONVULSIONS [None]
  - DRUG INEFFECTIVE [None]
